FAERS Safety Report 9255144 (Version 2)
Quarter: 2013Q2

REPORT INFORMATION
  Report Type: Spontaneous
  Country: US (occurrence: US)
  Receive Date: 20130425
  Receipt Date: 20130429
  Transmission Date: 20140414
  Serious: No
  Sender: FDA-Public Use
  Company Number: US-PFIZER INC-2013129363

PATIENT
  Age: 19 Year
  Sex: Female

DRUGS (1)
  1. LYRICA [Suspect]
     Dosage: 25 MG CAPSULE, 1X/DAY
     Route: 048
     Dates: start: 201303, end: 201304

REACTIONS (7)
  - Drug effect incomplete [Unknown]
  - Malaise [Unknown]
  - Pain [Unknown]
  - Arthralgia [Unknown]
  - Pain in extremity [Unknown]
  - Movement disorder [Unknown]
  - Gait disturbance [Unknown]
